FAERS Safety Report 16374638 (Version 3)
Quarter: 2019Q3

REPORT INFORMATION
  Report Type: Report from Study
  Country: US (occurrence: US)
  Receive Date: 20190530
  Receipt Date: 20190701
  Transmission Date: 20191004
  Serious: Yes (Hospitalization, Other)
  Sender: FDA-Public Use
  Company Number: US-BRISTOL-MYERS SQUIBB COMPANY-BMS-2019-051214

PATIENT
  Age: 35 Year
  Sex: Female
  Weight: 60.77 kg

DRUGS (3)
  1. BEVACIZUMAB. [Suspect]
     Active Substance: BEVACIZUMAB
     Indication: OVARIAN CANCER METASTATIC
     Dosage: 10 MILLIGRAM/KILOGRAM
     Route: 042
     Dates: start: 20190508
  2. RUCAPARIB [Suspect]
     Active Substance: RUCAPARIB
     Indication: OVARIAN CANCER METASTATIC
     Dosage: 600 MILLIGRAM, BID
     Route: 048
     Dates: start: 20190508
  3. NIVOLUMAB [Suspect]
     Active Substance: NIVOLUMAB
     Indication: OVARIAN CANCER METASTATIC
     Dosage: 240 MILLIGRAM, Q2WK
     Route: 042
     Dates: start: 20190508

REACTIONS (4)
  - Autoimmune disorder [Recovered/Resolved]
  - Dermatitis [Unknown]
  - Autoimmune colitis [Recovered/Resolved]
  - Rash [Unknown]

NARRATIVE: CASE EVENT DATE: 20190520
